FAERS Safety Report 21294671 (Version 5)
Quarter: 2022Q4

REPORT INFORMATION
  Report Type: Spontaneous
  Country: US (occurrence: US)
  Receive Date: 20220905
  Receipt Date: 20221219
  Transmission Date: 20230113
  Serious: Yes (Other)
  Sender: FDA-Public Use
  Company Number: US-BRISTOL-MYERS SQUIBB COMPANY-2022-090532

PATIENT
  Age: 51 Year
  Sex: Female

DRUGS (3)
  1. REVLIMID [Suspect]
     Active Substance: LENALIDOMIDE
     Indication: Plasma cell myeloma
     Dosage: TAKE 1 CAPSULE BY MOUTH DAILY ON DAYS 1-14, THEN 7 DAYS OFF
     Route: 048
     Dates: start: 20220816
  2. REVLIMID [Suspect]
     Active Substance: LENALIDOMIDE
     Dosage: FREQ:  EVERY DAY ON DAYS 1-14 THEN OFF FOR 7 DAYS
     Route: 048
  3. REVLIMID [Suspect]
     Active Substance: LENALIDOMIDE
     Dosage: TAKE 1 CAPSULE BY MOUTH EVERY DAY ON DAYS 1-14  THEN OFF FOR 7 DAYS
     Route: 048

REACTIONS (8)
  - Peripheral swelling [Unknown]
  - Neuropathy peripheral [Unknown]
  - Product dose omission issue [Unknown]
  - Nausea [Not Recovered/Not Resolved]
  - Sluggishness [Not Recovered/Not Resolved]
  - Constipation [Not Recovered/Not Resolved]
  - Hypoaesthesia oral [Unknown]
  - Off label use [Unknown]

NARRATIVE: CASE EVENT DATE: 20220926
